FAERS Safety Report 7991342-1 (Version None)
Quarter: 2011Q4

REPORT INFORMATION
  Report Type: 
  Country: None (occurrence: None)
  Receive Date: 20111219
  Receipt Date: 20111209
  Transmission Date: 20120403
  Serious: Yes (Other)
  Sender: FDA-Public Use
  Company Number: US-BAYER-2011-031459

PATIENT
  Age: 30 Year
  Sex: Female
  Weight: 72.562 kg

DRUGS (6)
  1. IBUPROFEN [Concomitant]
     Dosage: UNK
     Dates: start: 20100422
  2. DROSPIRENONE AND ETHINYL ESTRADIOL [Suspect]
     Indication: HYPERTRICHOSIS
  3. DROSPIRENONE AND ETHINYL ESTRADIOL [Suspect]
     Indication: PREMENSTRUAL SYNDROME
  4. DROSPIRENONE AND ETHINYL ESTRADIOL [Suspect]
     Indication: MENSTRUAL CYCLE MANAGEMENT
  5. DROSPIRENONE AND ETHINYL ESTRADIOL [Suspect]
     Indication: CONTRACEPTION
     Dosage: UNK
     Dates: start: 20090301
  6. CYCLOBENZAPRINE [Concomitant]
     Dosage: UNK
     Dates: start: 20100422

REACTIONS (5)
  - CHOLECYSTITIS CHRONIC [None]
  - PROCEDURAL PAIN [None]
  - CHOLELITHIASIS [None]
  - GALLBLADDER INJURY [None]
  - ABDOMINAL PAIN [None]
